FAERS Safety Report 17987158 (Version 1)
Quarter: 2020Q3

REPORT INFORMATION
  Report Type: Other
  Country: QA (occurrence: QA)
  Receive Date: 20200707
  Receipt Date: 20200707
  Transmission Date: 20201103
  Serious: Yes (Hospitalization, Other)
  Sender: FDA-Public Use
  Company Number: QA-USV-000111

PATIENT
  Age: 62 Year
  Sex: Female

DRUGS (10)
  1. EPTIFIBATIDE. [Suspect]
     Active Substance: EPTIFIBATIDE
     Indication: PREOPERATIVE CARE
     Dosage: 2 MICROGRAM/KG/MIN INFUSION
     Route: 042
  2. METOPROLOL TARTRATE. [Suspect]
     Active Substance: METOPROLOL TARTRATE
     Indication: POSTOPERATIVE CARE
     Dosage: 25 MG TWICE TWICE DAILY
  3. ACETYLSALICYLIC ACID [Suspect]
     Active Substance: ASPIRIN
     Indication: POSTOPERATIVE CARE
  4. CLOPIDOGREL [Suspect]
     Active Substance: CLOPIDOGREL BISULFATE
     Indication: POSTOPERATIVE CARE
     Dosage: 75 MG DAILY
  5. RAMIPRIL. [Suspect]
     Active Substance: RAMIPRIL
     Indication: POSTOPERATIVE CARE
     Dosage: 5 MG DAILY
  6. ROSUVASTATIN. [Suspect]
     Active Substance: ROSUVASTATIN
     Indication: POSTOPERATIVE CARE
     Dosage: 20 MG DAILY
  7. EPTIFIBATIDE. [Suspect]
     Active Substance: EPTIFIBATIDE
     Indication: PREMEDICATION
     Dosage: 180 MICROGRAM/KG AS A BOLUS DOSE
     Route: 040
  8. CLOPIDOGREL [Suspect]
     Active Substance: CLOPIDOGREL BISULFATE
     Indication: PREMEDICATION
  9. ACETYLSALICYLIC ACID [Suspect]
     Active Substance: ASPIRIN
     Indication: PREMEDICATION
  10. HEPARIN [Suspect]
     Active Substance: HEPARIN SODIUM
     Indication: PREMEDICATION
     Dosage: ONE DOSE OF INTRAVENOUS UNFRACTIONATED HEPARIN 7000 UNITS
     Route: 042

REACTIONS (2)
  - Thrombocytopenia [Recovering/Resolving]
  - Vascular stent thrombosis [Recovered/Resolved]
